FAERS Safety Report 7686623-5 (Version None)
Quarter: 2011Q3

REPORT INFORMATION
  Report Type: 
  Country: None (occurrence: None)
  Receive Date: 20110816
  Receipt Date: 20110816
  Transmission Date: 20111222
  Serious: Yes (Other)
  Sender: FDA-Public Use
  Company Number: None

PATIENT
  Age: 42 Year
  Sex: Male
  Weight: 129.27 kg

DRUGS (1)
  1. SYMBICORT [Suspect]
     Indication: ASTHMA
     Dosage: 2 SPRAYS
     Dates: start: 20110728, end: 20110810

REACTIONS (3)
  - SPEECH DISORDER [None]
  - OROPHARYNGEAL PAIN [None]
  - COUGH [None]
